FAERS Safety Report 21917391 (Version 7)
Quarter: 2025Q1

REPORT INFORMATION
  Report Type: Report from Study
  Country: BR (occurrence: BR)
  Receive Date: 20230126
  Receipt Date: 20250114
  Transmission Date: 20250408
  Serious: Yes (Death, Life-Threatening, Hospitalization, Disabling, Other)
  Sender: CELLTRION
  Company Number: BR-CELLTRION INC.-2023BR001591

PATIENT

DRUGS (10)
  1. INFLIXIMAB-DYYB [Suspect]
     Active Substance: INFLIXIMAB-DYYB
     Indication: Crohn^s disease
     Dosage: 3 AMPOULES - 100 MG - EVERY 4 WEEKS
     Route: 042
     Dates: start: 20221017, end: 20230909
  2. INFLIXIMAB-DYYB [Suspect]
     Active Substance: INFLIXIMAB-DYYB
     Dosage: 3 AMPOULES - 100 MG - EVERY 4 WEEKS
     Route: 042
     Dates: start: 202201
  3. INFLIXIMAB-DYYB [Suspect]
     Active Substance: INFLIXIMAB-DYYB
     Dosage: 4 AMPOULES EVERY 4 WEEKS
     Route: 042
  4. INFLIXIMAB-DYYB [Suspect]
     Active Substance: INFLIXIMAB-DYYB
     Dosage: 4 VIALS EVERY MONTH
     Route: 042
     Dates: start: 202211, end: 202309
  5. PREDNISOLONE [Concomitant]
     Active Substance: PREDNISOLONE
     Indication: Pain
     Route: 048
     Dates: end: 202303
  6. FERROUS SULFATE [Concomitant]
     Active Substance: FERROUS SULFATE
     Indication: Anaemia
     Route: 048
     Dates: start: 2020
  7. VITAMIN B COMPLEX [Concomitant]
     Active Substance: CYANOCOBALAMIN\DEXPANTHENOL\NIACINAMIDE\PYRIDOXINE HYDROCHLORIDE\RIBOFLAVIN 5^-PHOSPHATE SODIUM\THIA
     Route: 048
     Dates: start: 2020
  8. FOLIC ACID [Concomitant]
     Active Substance: FOLIC ACID
     Indication: Anaemia
     Route: 048
     Dates: start: 2020
  9. AZATHIOPRINE [Concomitant]
     Active Substance: AZATHIOPRINE
     Indication: Crohn^s disease
     Route: 048
     Dates: start: 202212
  10. AZATHIOPRINE [Concomitant]
     Active Substance: AZATHIOPRINE
     Route: 065

REACTIONS (16)
  - Sepsis [Fatal]
  - Condition aggravated [Fatal]
  - Hepatic failure [Fatal]
  - Large intestine infection [Unknown]
  - Confusional state [Unknown]
  - Urinary tract infection [Unknown]
  - Pneumonia [Unknown]
  - Memory impairment [Unknown]
  - Swelling face [Unknown]
  - Urinary tract infection [Unknown]
  - Enteritis infectious [Unknown]
  - Weight decreased [Unknown]
  - Gastrointestinal bacterial infection [Unknown]
  - Intentional product use issue [Unknown]
  - Intentional product use issue [Unknown]
  - Therapeutic product effect decreased [Unknown]

NARRATIVE: CASE EVENT DATE: 20221224
